FAERS Safety Report 4348647-5 (Version None)
Quarter: 2004Q2

REPORT INFORMATION
  Report Type: 
  Country: None (occurrence: None)
  Receive Date: 20040423
  Receipt Date: 20040414
  Transmission Date: 20050107
  Serious: Yes (Hospitalization)
  Sender: FDA-Public Use
  Company Number: JP-JNJFOC-20040402854

PATIENT
  Age: 60 Year
  Sex: Male

DRUGS (3)
  1. OFLOXACIN [Suspect]
     Dosage: 400 MG, ORAL
     Route: 048
     Dates: start: 20040224, end: 20040302
  2. AUGMENTIN [Suspect]
     Dosage: ORAL
     Route: 048
     Dates: start: 20040224, end: 20040302
  3. CISPLATIN [Suspect]
     Dosage: 29 MG, INTRAVENOUS
     Route: 042
     Dates: start: 20040209, end: 20040213

REACTIONS (3)
  - BRONCHITIS [None]
  - NEUTROPHIL COUNT DECREASED [None]
  - WHITE BLOOD CELL COUNT DECREASED [None]
